FAERS Safety Report 5274330-8 (Version None)
Quarter: 2007Q1

REPORT INFORMATION
  Report Type: 
  Country: None (occurrence: None)
  Receive Date: 20070323
  Receipt Date: 20070313
  Transmission Date: 20070707
  Serious: Yes (Other)
  Sender: FDA-Public Use
  Company Number: FR-PFIZER INC-2007005857

PATIENT
  Sex: Female
  Weight: 37 kg

DRUGS (13)
  1. ZYVOX [Suspect]
     Indication: MYCOBACTERIUM ABSCESSUS INFECTION
     Route: 042
  2. SALMETEROL [Concomitant]
     Route: 055
  3. MYRTILLUS [Concomitant]
     Route: 048
  4. GENTAMICIN [Concomitant]
     Route: 042
  5. COLISTIMETHATE SODIUM [Concomitant]
  6. PULMOZYME [Concomitant]
  7. AZITHROMYCIN [Concomitant]
     Route: 048
  8. FLUTICASONE PROPIONATE [Concomitant]
     Route: 055
  9. PANCREATIN TRIPLE STRENGTH CAP [Concomitant]
     Route: 048
  10. TOCOPHEROL CONCENTRATE CAP [Concomitant]
     Route: 048
  11. BETACAROTENE [Concomitant]
     Route: 048
  12. PHYTOMENADIONE [Concomitant]
     Route: 048
  13. URSODIOL [Concomitant]
     Route: 048

REACTIONS (1)
  - SCOTOMA [None]
